FAERS Safety Report 9963960 (Version 2)
Quarter: 2014Q2

REPORT INFORMATION
  Report Type: Spontaneous
  Country: IT (occurrence: IT)
  Receive Date: 20140305
  Receipt Date: 20140410
  Transmission Date: 20141212
  Serious: Yes (Other)
  Sender: FDA-Public Use
  Company Number: IT-ABBVIE-14P-083-1209070-00

PATIENT
  Age: 58 Year
  Sex: Female

DRUGS (2)
  1. SODIUM VALPROATE [Suspect]
     Indication: DRUG ABUSE
     Dosage: TOTAL
     Route: 048
     Dates: start: 20131231, end: 20131231
  2. LORAZEPAM [Suspect]
     Indication: DRUG ABUSE
     Dosage: TOTAL
     Route: 065
     Dates: start: 20131231, end: 20131231

REACTIONS (2)
  - Sopor [Recovering/Resolving]
  - Intentional overdose [Recovering/Resolving]
